FAERS Safety Report 15733908 (Version 5)
Quarter: 2019Q2

REPORT INFORMATION
  Report Type: Spontaneous
  Country: US (occurrence: US)
  Receive Date: 20181218
  Receipt Date: 20190402
  Transmission Date: 20190711
  Serious: No
  Sender: FDA-Public Use
  Company Number: US-PFIZER INC-2017431100

PATIENT
  Age: 66 Year
  Sex: Female
  Weight: 88.45 kg

DRUGS (23)
  1. ALLEGRA [Concomitant]
     Active Substance: FEXOFENADINE HYDROCHLORIDE
     Dosage: 360 MG, 2X/DAY (TAKE 2 TABLETS EVERY MORNING AND 2 TABLETS AT DINNER)
     Route: 048
  2. ATARAX [Concomitant]
     Active Substance: HYDROXYZINE HYDROCHLORIDE
     Indication: PRURITUS
     Dosage: UNK, AS NEEDED (TAKE 1-2 TABLETS AS NEEDED IN THE EVENING)
     Route: 048
     Dates: start: 20170823
  3. VITAMIN D2 [Concomitant]
     Active Substance: ERGOCALCIFEROL
     Dosage: 50000 IU, UNK
     Route: 048
  4. LYRICA [Suspect]
     Active Substance: PREGABALIN
     Indication: PRURITUS
     Dosage: 75 MG, 2X/DAY
     Route: 048
     Dates: start: 20170823, end: 2017
  5. LYRICA [Suspect]
     Active Substance: PREGABALIN
     Indication: BRACHIORADIAL PRURITUS
     Dosage: 75 MG, 2X/DAY
     Route: 048
     Dates: start: 20171010
  6. LYRICA [Suspect]
     Active Substance: PREGABALIN
     Dosage: 100 MG, 2X/DAY
     Route: 048
  7. PRILOSEC [Concomitant]
     Active Substance: OMEPRAZOLE MAGNESIUM
     Dosage: 40 MG, DAILY (BEFORE MEAL)
     Route: 048
  8. PROTONIX [Concomitant]
     Active Substance: PANTOPRAZOLE SODIUM
     Dosage: 40 MG, DAILY
     Route: 048
  9. GABAPENTIN. [Concomitant]
     Active Substance: GABAPENTIN
     Indication: BRACHIORADIAL PRURITUS
     Dosage: 100 MG, 3X/DAY
     Route: 048
  10. HIBICLENS [Concomitant]
     Active Substance: CHLORHEXIDINE GLUCONATE
     Dosage: UNK, DAILY (WASH FROM NECK DOWN DAILY. LEAVE ON WETTED SKIN FOR 3-5 MIN BEFORE RINSING)
     Route: 061
  11. XANAX [Concomitant]
     Active Substance: ALPRAZOLAM
     Dosage: UNK
     Route: 048
  12. CLEOCIN T [Concomitant]
     Active Substance: CLINDAMYCIN PHOSPHATE
     Dosage: UNK, 2X/DAY (APPLY TWICE DAILY TO OPEN WOUNDS ON SKIN)
     Route: 061
  13. LEVOTHYROXINE. [Concomitant]
     Active Substance: LEVOTHYROXINE
     Dosage: 100 UG, UNK
     Route: 048
  14. GABAPENTIN. [Concomitant]
     Active Substance: GABAPENTIN
     Indication: PRURITUS
     Dosage: 300 MG, 3X/DAY (1 CAPSULE BY MOUTH IN THE MORNING, 1 CAPSULE BY MOUTH IN THE AFTERNOON, 1 CAP AT NI)
     Route: 048
     Dates: start: 2017
  15. EMLA [Concomitant]
     Active Substance: LIDOCAINE\PRILOCAINE
     Dosage: 5 G, UNK (APPLY 5 G TO AFFECTED AREA ONCE)
     Route: 061
  16. DITROPAN [Concomitant]
     Active Substance: OXYBUTYNIN CHLORIDE
     Dosage: UNK
     Route: 048
  17. REQUIP [Concomitant]
     Active Substance: ROPINIROLE HYDROCHLORIDE
     Dosage: 0.25 MG, 3X/DAY
     Route: 048
  18. PRAX [Concomitant]
     Active Substance: PRAMOXINE HYDROCHLORIDE
     Indication: PRURITUS
     Dosage: UNK, AS NEEDED
  19. PRAX [Concomitant]
     Active Substance: PRAMOXINE HYDROCHLORIDE
     Indication: SKIN BURNING SENSATION
  20. ZANTAC [Concomitant]
     Active Substance: RANITIDINE HYDROCHLORIDE
     Dosage: UNK
     Route: 048
  21. CORTISPORIN [Concomitant]
     Active Substance: BACITRACIN ZINC\HYDROCORTISONE\NEOMYCIN SULFATE\POLYMYXIN B SULFATE
     Dosage: UNK (3.5MG-10,000UNIT/ML-1%,  PLACE 3-4 DROPS INTO BOTH EARS 3 TIMES A DAY FOR 7 DAYS)
  22. XYLOCAINE [Concomitant]
     Active Substance: LIDOCAINE HYDROCHLORIDE
     Dosage: UNK, 2X/DAY
     Route: 061
     Dates: start: 20170823
  23. ALLEGRA [Concomitant]
     Active Substance: FEXOFENADINE HYDROCHLORIDE
     Dosage: 180 MG, DAILY
     Route: 048

REACTIONS (3)
  - Drug effective for unapproved indication [Unknown]
  - Therapeutic response unexpected [Unknown]
  - Pre-existing condition improved [Unknown]

NARRATIVE: CASE EVENT DATE: 2017
